FAERS Safety Report 9496185 (Version 2)
Quarter: 2013Q4

REPORT INFORMATION
  Report Type: Spontaneous
  Country: FR (occurrence: FR)
  Receive Date: 20130904
  Receipt Date: 20131107
  Transmission Date: 20140711
  Serious: Yes (Life-Threatening, Hospitalization)
  Sender: FDA-Public Use
  Company Number: FR-BRISTOL-MYERS SQUIBB COMPANY-19226703

PATIENT
  Age: 60 Year
  Sex: Female
  Weight: 46 kg

DRUGS (11)
  1. ORENCIA FOR INJ 250 MG/VIAL [Suspect]
     Indication: RHEUMATOID ARTHRITIS
     Dosage: POWDER FOR INJECTION
     Route: 042
     Dates: start: 20120109, end: 20130731
  2. ARAVA [Suspect]
  3. PLAVIX [Concomitant]
  4. TAHOR [Concomitant]
  5. ATACAND [Concomitant]
  6. INEXIUM [Concomitant]
  7. ALPRAZOLAM [Concomitant]
  8. FLUVOXAMINE [Concomitant]
  9. ATROVENT [Concomitant]
  10. ATROVENT INHALATION AEROSOL [Concomitant]
     Dosage: ORAL OR INTRAVENOUS
  11. TERBUTALINE [Concomitant]

REACTIONS (2)
  - Bronchospasm [Recovered/Resolved]
  - Leukopenia [Recovered/Resolved]
